FAERS Safety Report 20673645 (Version 2)
Quarter: 2022Q2

REPORT INFORMATION
  Report Type: Spontaneous
  Country: BR (occurrence: BR)
  Receive Date: 20220405
  Receipt Date: 20220602
  Transmission Date: 20220720
  Serious: Yes (Other)
  Sender: FDA-Public Use
  Company Number: BR-NOVARTISPH-NVSC2022BR075281

PATIENT
  Age: 71 Year
  Sex: Female
  Weight: 41.5 kg

DRUGS (6)
  1. KISQALI [Suspect]
     Active Substance: RIBOCICLIB
     Indication: Genitourinary tract neoplasm
     Dosage: 1 DOSAGE FORM, QD (IN THE CYCLE OF 21 DAYS)
     Route: 048
     Dates: start: 20220202
  2. KISQALI [Suspect]
     Active Substance: RIBOCICLIB
     Dosage: UNK, QD(3 TABLETS)
     Route: 065
     Dates: start: 20220202
  3. LETROZOLE [Suspect]
     Active Substance: LETROZOLE
     Indication: Genitourinary tract neoplasm
     Dosage: 1 DOSAGE FORM, QD
     Route: 048
     Dates: start: 20220202
  4. LETROZOLE [Suspect]
     Active Substance: LETROZOLE
     Dosage: 1 DOSAGE FORM, CONT
     Route: 065
     Dates: start: 20220202
  5. LETROZOLE [Suspect]
     Active Substance: LETROZOLE
     Dosage: 2.5 MG(1 TABLET DAILY, CONTINUOUS)
     Route: 065
  6. ASPIRIN [Concomitant]
     Active Substance: ASPIRIN
     Indication: Product used for unknown indication
     Dosage: 100 MG(1 PILL A DAY)
     Route: 065

REACTIONS (4)
  - Leukopenia [Unknown]
  - Neutropenia [Recovered/Resolved]
  - Neutropenia [Unknown]
  - Product use in unapproved indication [Unknown]

NARRATIVE: CASE EVENT DATE: 20220228
